FAERS Safety Report 4681088-X (Version None)
Quarter: 2005Q2

REPORT INFORMATION
  Report Type: 
  Country: None (occurrence: None)
  Receive Date: 20050603
  Receipt Date: 20050526
  Transmission Date: 20051028
  Serious: Yes (Other)
  Sender: FDA-Public Use
  Company Number: NL-GLAXOSMITHKLINE-B0383167A

PATIENT

DRUGS (2)
  1. SALMETEROL XINAFOATE [Suspect]
     Route: 055
  2. HIV TREATMENTS (UNSPECIFIED) [Concomitant]

REACTIONS (1)
  - CUSHING'S SYNDROME [None]
